FAERS Safety Report 24227192 (Version 1)
Quarter: 2024Q3

REPORT INFORMATION
  Report Type: Spontaneous
  Country: CN (occurrence: None)
  Receive Date: 20240820
  Receipt Date: 20240820
  Transmission Date: 20241017
  Serious: Yes (Other)
  Sender: ASTRAZENECA
  Company Number: 2024A185780

PATIENT
  Age: 20692 Day
  Sex: Male
  Weight: 62 kg

DRUGS (4)
  1. BRILINTA [Suspect]
     Active Substance: TICAGRELOR
     Indication: Arteriosclerosis coronary artery
     Route: 048
     Dates: start: 20240803, end: 20240803
  2. BRILINTA [Suspect]
     Active Substance: TICAGRELOR
     Indication: Hypertension
     Route: 048
     Dates: start: 20240803, end: 20240803
  3. BRILINTA [Suspect]
     Active Substance: TICAGRELOR
     Indication: Cerebral arteriosclerosis
     Route: 048
     Dates: start: 20240803, end: 20240803
  4. BRILINTA [Suspect]
     Active Substance: TICAGRELOR
     Indication: Cardiac failure
     Route: 048
     Dates: start: 20240803, end: 20240803

REACTIONS (1)
  - Chest discomfort [Recovering/Resolving]

NARRATIVE: CASE EVENT DATE: 20240804
